FAERS Safety Report 4915599-6 (Version None)
Quarter: 2006Q1

REPORT INFORMATION
  Report Type: 
  Country: None (occurrence: None)
  Receive Date: 20060217
  Receipt Date: 20030605
  Transmission Date: 20060701
  Serious: Yes (Other)
  Sender: FDA-Public Use
  Company Number: US-MERCK-0306USA00775

PATIENT
  Age: 56 Year
  Sex: Female
  Weight: 62 kg

DRUGS (5)
  1. VIOXX [Suspect]
     Indication: TOE DEFORMITY
     Route: 048
     Dates: start: 20001222, end: 20010606
  2. VIOXX [Suspect]
     Route: 048
     Dates: start: 20030820
  3. PREMPRO [Concomitant]
     Route: 065
  4. DYAZIDE [Concomitant]
     Route: 065
  5. ASPIRIN [Concomitant]
     Route: 065

REACTIONS (41)
  - ADVERSE EVENT [None]
  - ANGINA PECTORIS [None]
  - ANGIOPATHY [None]
  - ANXIETY [None]
  - APPENDIX DISORDER [None]
  - ARTHROPATHY [None]
  - BUNION [None]
  - CARPAL TUNNEL SYNDROME [None]
  - CEREBRAL ARTERIOSCLEROSIS [None]
  - CEREBROVASCULAR ACCIDENT [None]
  - CEREBROVASCULAR DISORDER [None]
  - CHRONIC OBSTRUCTIVE PULMONARY DISEASE [None]
  - COMPLICATED MIGRAINE [None]
  - CONVULSION [None]
  - CYSTITIS [None]
  - DEPRESSION [None]
  - DIZZINESS [None]
  - FATIGUE [None]
  - GANGLION [None]
  - GASTROOESOPHAGEAL REFLUX DISEASE [None]
  - HYPERCHOLESTEROLAEMIA [None]
  - HYPERLIPIDAEMIA [None]
  - HYPERTENSION [None]
  - HYPOAESTHESIA [None]
  - LACUNAR INFARCTION [None]
  - MIGRAINE [None]
  - MONARTHRITIS [None]
  - NECK PAIN [None]
  - NERVE COMPRESSION [None]
  - NEUROPATHY PERIPHERAL [None]
  - PERIARTHRITIS [None]
  - SINUS TARSI SYNDROME [None]
  - SKIN LESION [None]
  - SYNCOPE [None]
  - TINEL'S SIGN [None]
  - TOE DEFORMITY [None]
  - TONSILLAR DISORDER [None]
  - TRANSIENT ISCHAEMIC ATTACK [None]
  - TRIGGER FINGER [None]
  - VERTIGO [None]
  - WRIST FRACTURE [None]
